FAERS Safety Report 8873496 (Version 1)
Quarter: 2012Q4

REPORT INFORMATION
  Report Type: 
  Country: AT (occurrence: AT)
  Receive Date: 20121030
  Receipt Date: 20121030
  Transmission Date: 20130627
  Serious: Yes (Hospitalization)
  Sender: FDA-Public Use
  Company Number: AT-VERTEX PHARMACEUTICAL INC.-2012-021648

PATIENT
  Age: 64 Year
  Sex: Female
  Weight: 90 kg

DRUGS (6)
  1. INCIVO [Suspect]
     Indication: HEPATITIS C
     Dosage: 750 mg, tid
     Route: 048
     Dates: start: 201206, end: 201207
  2. INCIVO [Suspect]
     Dosage: Dosage Form: Tablet, 2-2-2
     Route: 048
     Dates: start: 201206, end: 201207
  3. PEGASYS [Suspect]
     Indication: HEPATITIS C
     Dosage: Dosage Form: Unspecified
     Route: 065
     Dates: start: 201110, end: 201207
  4. PEGASYS [Suspect]
     Dosage: Dosage Form: Unspecified
     Route: 065
     Dates: start: 2006
  5. REBETOL [Concomitant]
     Indication: HEPATITIS C
     Dosage: Dosage Form: Unspecified
     Route: 048
     Dates: start: 2006
  6. REBETOL [Concomitant]
     Dosage: Dosage Form: Unspecified
     Route: 048
     Dates: start: 201110, end: 201207

REACTIONS (4)
  - Transaminases increased [Unknown]
  - Liver sarcoidosis [Not Recovered/Not Resolved]
  - Cutaneous sarcoidosis [Not Recovered/Not Resolved]
  - Granuloma [Unknown]
